FAERS Safety Report 6682724-9 (Version None)
Quarter: 2010Q2

REPORT INFORMATION
  Report Type: 
  Country: None (occurrence: None)
  Receive Date: 20100415
  Receipt Date: 20100407
  Transmission Date: 20101027
  Serious: Yes (Other)
  Sender: FDA-Public Use
  Company Number: CA-BAXTER-2010BH003158

PATIENT
  Sex: Female

DRUGS (1)
  1. SODIUM CHLORIDE 0.9% AND POTASSIUM CHLORIDE 0.075% [Suspect]
     Indication: DRUG USE FOR UNKNOWN INDICATION
     Route: 042
     Dates: start: 20100211

REACTIONS (4)
  - ASTHENIA [None]
  - DEVICE BREAKAGE [None]
  - HAEMORRHAGE [None]
  - TRAUMATIC SHOCK [None]
